FAERS Safety Report 7722098-5 (Version None)
Quarter: 2011Q3

REPORT INFORMATION
  Report Type: 
  Country: None (occurrence: None)
  Receive Date: 20110825
  Receipt Date: 20110816
  Transmission Date: 20111222
  Serious: Yes (Hospitalization, Disabling)
  Sender: FDA-Public Use
  Company Number: 15856982

PATIENT
  Age: 53 Year
  Sex: Male

DRUGS (16)
  1. RAPAMUNE [Concomitant]
  2. ACYCLOVIR [Concomitant]
  3. ENOXAPARIN SODIUM [Suspect]
     Indication: EMBOLISM
     Dosage: SC
     Route: 058
     Dates: start: 20110215
  4. VITAMIN D [Concomitant]
  5. RAMIPRIL [Concomitant]
  6. APIXABAN [Suspect]
     Indication: EMBOLISM
     Dosage: 10 MILLIGRAM 1 DAY, ORAL
     Route: 048
     Dates: start: 20110215
  7. WARFARIN SODIUM [Suspect]
     Indication: EMBOLISM
     Dosage: 6 MILLIGRAM 1 DAY, ORAL
     Route: 048
     Dates: start: 20110215
  8. PLACEBO [Suspect]
     Indication: EMBOLISM
     Dates: start: 20110215
  9. SERTRALINE (SERTRALINE HCL) [Concomitant]
  10. CALCIUM CARBONATE [Concomitant]
  11. PANTOPRAZOLE SODIUM [Concomitant]
  12. IMOVANE (ZOPICLONE) [Concomitant]
  13. METOPROLOL TARTRATE [Concomitant]
  14. FLOMAX [Concomitant]
  15. MULTIVITAMIN (MULTIPLE VITAMINS) [Concomitant]
  16. SUPEUDOL (OXYCODONE HCL) [Concomitant]

REACTIONS (2)
  - PALPITATIONS [None]
  - SYSTEMIC INFLAMMATORY RESPONSE SYNDROME [None]
